FAERS Safety Report 8032495-9 (Version None)
Quarter: 2012Q1

REPORT INFORMATION
  Report Type: 
  Country: None (occurrence: None)
  Receive Date: 20120105
  Receipt Date: 20111221
  Transmission Date: 20120608
  Serious: Yes (Other)
  Sender: FDA-Public Use
  Company Number: 1000026551

PATIENT
  Age: 91 Year
  Sex: Female

DRUGS (21)
  1. ARICEPT [Concomitant]
  2. RABEPRAZOLE SODIUM [Concomitant]
  3. PRORENAL (LIMAPROST) [Concomitant]
  4. PLETAL [Concomitant]
  5. GASMOTIN (MOSAPRIDE CITRATE) [Concomitant]
  6. GS PLASTER C (GLYCOL SALICYLATE, MENTHOL) [Concomitant]
  7. AMARYL [Concomitant]
  8. RISEDRONATE SODIUM [Concomitant]
  9. SP (DEQUALINIUM CHLORIDE) [Concomitant]
  10. PRAVASTATIN [Concomitant]
  11. DIOVAN [Concomitant]
  12. MEXITIL [Concomitant]
  13. MUCOSTA (REBAMIPIDE) [Concomitant]
  14. ZOLPIDEM TARTRATE [Concomitant]
  15. KETOPROFEN [Concomitant]
  16. RIZE (CLOTIAZEPAM) [Concomitant]
  17. ALDACTONE [Concomitant]
  18. MEMANTINE HYDROCHLORIDE [Suspect]
     Indication: DEMENTIA
     Dosage: 5 MG (5 MG, 1 IN 1 D), ORAL
     Route: 048
     Dates: start: 20110625, end: 20110627
  19. MEMANTINE HYDROCHLORIDE [Suspect]
     Indication: DEMENTIA ALZHEIMER'S TYPE
     Dosage: 5 MG (5 MG, 1 IN 1 D), ORAL
     Route: 048
     Dates: start: 20110625, end: 20110627
  20. MEMANTINE HYDROCHLORIDE [Suspect]
     Indication: MEMORY IMPAIRMENT
     Dosage: 5 MG (5 MG, 1 IN 1 D), ORAL
     Route: 048
     Dates: start: 20110625, end: 20110627
  21. GS PLASTER H (GLYCOL SALICYLATE) [Concomitant]

REACTIONS (3)
  - ABASIA [None]
  - HAEMOGLOBIN DECREASED [None]
  - FAECAL INCONTINENCE [None]
